FAERS Safety Report 9581293 (Version 1)
Quarter: 2013Q4

REPORT INFORMATION
  Report Type: Spontaneous
  Country: US (occurrence: US)
  Receive Date: 20131002
  Receipt Date: 20131002
  Transmission Date: 20140711
  Serious: Yes (Hospitalization)
  Sender: FDA-Public Use
  Company Number: US-PFIZER INC-2013281585

PATIENT
  Age: 66 Year
  Sex: Female
  Weight: 83.9 kg

DRUGS (2)
  1. PLAQUENIL [Concomitant]
     Dosage: UNK
  2. CELEBREX [Suspect]
     Indication: ARTHRITIS
     Dosage: 200 MG, 2X/DAY
     Dates: end: 201305

REACTIONS (2)
  - Gastrooesophageal reflux disease [Unknown]
  - Abdominal pain upper [Unknown]
